FAERS Safety Report 6674845-1 (Version None)
Quarter: 2010Q2

REPORT INFORMATION
  Report Type: 
  Country: None (occurrence: None)
  Receive Date: 20100409
  Receipt Date: 20100331
  Transmission Date: 20101027
  Serious: Yes (Other)
  Sender: FDA-Public Use
  Company Number: US-JNJFOC-20100400978

PATIENT
  Sex: Female
  Weight: 61.24 kg

DRUGS (3)
  1. ORTHO TRI-CYCLEN LO [Suspect]
     Indication: CONTRACEPTION
     Route: 048
  2. ANTIBIOTIC [Concomitant]
     Indication: PNEUMONIA
     Route: 065
  3. KLONOPIN [Concomitant]
     Indication: ANXIETY
     Route: 048

REACTIONS (2)
  - ADVERSE EVENT [None]
  - PNEUMONIA [None]
